FAERS Safety Report 14704192 (Version 1)
Quarter: 2018Q2

REPORT INFORMATION
  Report Type: Spontaneous
  Country: US (occurrence: US)
  Receive Date: 20180402
  Receipt Date: 20180402
  Transmission Date: 20180711
  Serious: No
  Sender: FDA-Public Use
  Company Number: US-ALLERGAN-1707087US

PATIENT
  Sex: Female

DRUGS (1)
  1. MESALAZINE - BP [Suspect]
     Active Substance: MESALAMINE
     Indication: NAUSEA
     Dosage: 2 DF, BID
     Route: 048
     Dates: start: 201609

REACTIONS (2)
  - Drug ineffective for unapproved indication [Unknown]
  - Off label use [Unknown]
